FAERS Safety Report 17308212 (Version 1)
Quarter: 2020Q1

REPORT INFORMATION
  Report Type: Spontaneous
  Country: DE (occurrence: DE)
  Receive Date: 20200123
  Receipt Date: 20200123
  Transmission Date: 20200409
  Serious: Yes (Other)
  Sender: FDA-Public Use
  Company Number: DE-ASTRAZENECA-2020SE11076

PATIENT
  Age: 53 Year
  Sex: Male

DRUGS (5)
  1. SYMBICORT [Suspect]
     Active Substance: BUDESONIDE\FORMOTEROL FUMARATE DIHYDRATE
     Indication: ASTHMA
     Dosage: 320/9 UG
     Route: 055
  2. SALBUTAMOL [Concomitant]
     Active Substance: ALBUTEROL
  3. ACETYLSALICYLIC ACID [Concomitant]
     Active Substance: ASPIRIN
  4. BRETARIS GENUAIR [Concomitant]
     Active Substance: ACLIDINIUM BROMIDE
  5. DECORTIN [Concomitant]
     Active Substance: PREDNISONE

REACTIONS (15)
  - Prolonged expiration [Unknown]
  - Spinal disorder [Unknown]
  - Renal disorder [Unknown]
  - Nasal congestion [Unknown]
  - Chest pain [Unknown]
  - Dyspnoea [Unknown]
  - Heart rate increased [Unknown]
  - Crepitations [Unknown]
  - Drug ineffective [Unknown]
  - Infection [Unknown]
  - Chest discomfort [Unknown]
  - Lung disorder [Unknown]
  - Arteriosclerosis coronary artery [Unknown]
  - Renal cyst [Unknown]
  - Rhonchi [Unknown]
